FAERS Safety Report 10190337 (Version 1)
Quarter: 2014Q2

REPORT INFORMATION
  Report Type: Spontaneous
  Country: US (occurrence: US)
  Receive Date: 20140522
  Receipt Date: 20140522
  Transmission Date: 20141212
  Serious: No
  Sender: FDA-Public Use
  Company Number: US-BAXTER-2014BAX024112

PATIENT
  Sex: Female
  Weight: 46.31 kg

DRUGS (2)
  1. DIANEAL LOW CALCIUM [Suspect]
     Indication: PERITONEAL DIALYSIS
     Dosage: 2 BAGS
     Route: 033
  2. INSULIN [Concomitant]
     Indication: DIABETES MELLITUS

REACTIONS (2)
  - Musculoskeletal pain [Unknown]
  - Abdominal distension [Recovering/Resolving]
